FAERS Safety Report 18851119 (Version 2)
Quarter: 2021Q4

REPORT INFORMATION
  Report Type: Spontaneous
  Country: GB (occurrence: GB)
  Receive Date: 20210205
  Receipt Date: 20211015
  Transmission Date: 20220304
  Serious: Yes (Disabling, Other)
  Sender: FDA-Public Use
  Company Number: None

PATIENT
  Age: 26 Year
  Sex: Male
  Weight: 74 kg

DRUGS (7)
  1. PROTOPIC [Suspect]
     Active Substance: TACROLIMUS
     Indication: Eczema
     Dosage: TWICE DAILY APPLICATION DURING FLARES
     Route: 061
     Dates: end: 20201217
  2. PROTOPIC [Suspect]
     Active Substance: TACROLIMUS
     Indication: Eczema
     Dosage: TWICE DAILY APPLICATION DURING FLARES
     Route: 061
     Dates: end: 20201217
  3. PROTOPIC [Suspect]
     Active Substance: TACROLIMUS
     Indication: Eczema
     Dosage: TWICE DAILY APPLICATION DURING FLARES
     Route: 061
     Dates: end: 20201217
  4. FLUCLOXACILLIN [Concomitant]
     Active Substance: FLUCLOXACILLIN
     Indication: Ill-defined disorder
  5. TERBINAFINE [Concomitant]
     Active Substance: TERBINAFINE
     Indication: Ill-defined disorder
  6. FEXOFENADINE HYDROCHLORIDE [Concomitant]
     Active Substance: FEXOFENADINE HYDROCHLORIDE
     Indication: Ill-defined disorder
  7. BETNOVATE [Suspect]
     Active Substance: BETAMETHASONE
     Indication: Eczema
     Dosage: TWICE DAILY APPLICATION DURING FLARES
     Route: 061
     Dates: end: 20201217

REACTIONS (7)
  - Skin haemorrhage [Not Recovered/Not Resolved]
  - Insomnia [Not Recovered/Not Resolved]
  - Flushing [Unknown]
  - Application site pain [Not Recovered/Not Resolved]
  - Adverse drug reaction [Not Recovered/Not Resolved]
  - Crying [Not Recovered/Not Resolved]
  - Application site inflammation [Not Recovered/Not Resolved]

NARRATIVE: CASE EVENT DATE: 20201221
